FAERS Safety Report 7788897-9 (Version None)
Quarter: 2011Q3

REPORT INFORMATION
  Report Type: 
  Country: None (occurrence: None)
  Receive Date: 20110930
  Receipt Date: 20110926
  Transmission Date: 20111222
  Serious: Yes (Hospitalization)
  Sender: FDA-Public Use
  Company Number: DK-PFIZER INC-2011227819

PATIENT
  Age: 75 Year
  Sex: Male
  Weight: 70 kg

DRUGS (2)
  1. SUNITINIB MALATE [Suspect]
     Indication: METASTATIC RENAL CELL CARCINOMA
     Dosage: 37.5 MG, 1X/DAY, CYCLE 28/49
     Dates: end: 20101231
  2. SUNITINIB MALATE [Suspect]
     Dosage: 50 MG, 1X/DAY, CYCLE 28/42
     Dates: start: 20090211

REACTIONS (2)
  - GASTRIC ULCER HAEMORRHAGE [None]
  - ANAEMIA [None]
